FAERS Safety Report 24073172 (Version 1)
Quarter: 2024Q3

REPORT INFORMATION
  Report Type: Spontaneous
  Country: CH (occurrence: CH)
  Receive Date: 20240710
  Receipt Date: 20240710
  Transmission Date: 20241017
  Serious: Yes (Other)
  Sender: MYLAN
  Company Number: CH-MYLANLABS-2024M1064053

PATIENT
  Age: 77 Year
  Sex: Female

DRUGS (2)
  1. VENLAFAXINE [Suspect]
     Active Substance: VENLAFAXINE HYDROCHLORIDE
     Indication: Depression
     Dosage: 375 MILLIGRAM, QD
     Route: 065
  2. VENLAFAXINE [Suspect]
     Active Substance: VENLAFAXINE HYDROCHLORIDE
     Dosage: UNK; DOSE OF VENLAFAXINE WAS REDUCED
     Route: 065

REACTIONS (2)
  - Cardiotoxicity [Recovered/Resolved]
  - Cardiac failure [Recovered/Resolved]
